FAERS Safety Report 4918708-8 (Version None)
Quarter: 2006Q1

REPORT INFORMATION
  Report Type: 
  Country: None (occurrence: None)
  Receive Date: 20060221
  Receipt Date: 20060221
  Transmission Date: 20060701
  Serious: No
  Sender: FDA-Public Use
  Company Number: None

PATIENT
  Sex: Female

DRUGS (1)
  1. NICODERM CQ [Suspect]
     Indication: SMOKING CESSATION THERAPY
     Dosage: 14 MG/ 1 PO DAY/TRANS
     Route: 062
     Dates: start: 20041124, end: 20041221

REACTIONS (1)
  - PREMATURE SEPARATION OF PLACENTA [None]
